FAERS Safety Report 5316294-4 (Version None)
Quarter: 2007Q2

REPORT INFORMATION
  Report Type: 
  Country: None (occurrence: None)
  Receive Date: 20070430
  Receipt Date: 20070413
  Transmission Date: 20071010
  Serious: Yes (Hospitalization)
  Sender: FDA-Public Use
  Company Number: WAES 0703USA01373

PATIENT
  Age: 49 Year
  Sex: Male

DRUGS (10)
  1. DECADRON [Suspect]
     Indication: GLIOBLASTOMA MULTIFORME
     Dosage: PO
     Route: 048
     Dates: end: 20070206
  2. TEMODAR [Suspect]
     Indication: GLIOBLASTOMA MULTIFORME
     Dosage: 155 MG/DAILY/PO
     Route: 048
     Dates: start: 20061226, end: 20070206
  3. CRESTOR [Concomitant]
  4. DILANTIN [Concomitant]
  5. DIIOVAN [Concomitant]
  6. K-DUR 10 [Concomitant]
  7. LASIX [Concomitant]
  8. PEPCID [Concomitant]
  9. ZETIA [Concomitant]
  10. METFORMIN HCL [Concomitant]

REACTIONS (6)
  - CONVULSION [None]
  - DIABETES MELLITUS INADEQUATE CONTROL [None]
  - OEDEMA [None]
  - POST PROCEDURAL COMPLICATION [None]
  - PULMONARY EMBOLISM [None]
  - SYNCOPE [None]
